FAERS Safety Report 8236742-X (Version None)
Quarter: 2012Q1

REPORT INFORMATION
  Report Type: 
  Country: None (occurrence: None)
  Receive Date: 20120326
  Receipt Date: 20120326
  Transmission Date: 20120608
  Serious: No
  Sender: FDA-Public Use
  Company Number: None

PATIENT
  Age: 19 Year
  Sex: Male

DRUGS (1)
  1. CREST PRO HEALTH INVIGORATING CLEAN MOUTHWASH [Suspect]
     Dates: start: 20120221

REACTIONS (6)
  - TONGUE DISCOLOURATION [None]
  - AGEUSIA [None]
  - ORAL MUCOSAL DISCOLOURATION [None]
  - ORAL MUCOSAL EXFOLIATION [None]
  - TONGUE DISORDER [None]
  - ORAL PAIN [None]
